FAERS Safety Report 7472612-2 (Version None)
Quarter: 2011Q2

REPORT INFORMATION
  Report Type: 
  Country: None (occurrence: None)
  Receive Date: 20110502
  Receipt Date: 20110419
  Transmission Date: 20111010
  Serious: Yes (Hospitalization)
  Sender: FDA-Public Use
  Company Number: CLOF-1000741

PATIENT
  Age: 60 Year
  Sex: Female
  Weight: 62 kg

DRUGS (17)
  1. ANTIVIRALS NOS [Concomitant]
  2. LOPRESSOR [Concomitant]
  3. SENNA (SENNA ALEXANDRINA) [Concomitant]
  4. CLOLAR [Suspect]
     Indication: NON-HODGKIN'S LYMPHOMA REFRACTORY
     Dosage: 6 MG/M2, QDX5, INTRAVENOUS
     Route: 042
     Dates: start: 20061101, end: 20061105
  5. LIDODERM [Concomitant]
  6. OXYCONTIN [Concomitant]
  7. PROTONIX [Concomitant]
  8. KAY CIEL DURA-TABS [Concomitant]
  9. HYDRALAZINE HCL [Concomitant]
  10. CLONIDINE [Concomitant]
  11. SYNTHROID [Concomitant]
  12. ZOLOFT [Concomitant]
  13. NORVASC [Concomitant]
  14. EPOGEN [Concomitant]
  15. CALCITRIOL [Concomitant]
  16. ANTIFUNGALS [Concomitant]
  17. GLIPIZIDE [Concomitant]

REACTIONS (11)
  - PANCYTOPENIA [None]
  - UNRESPONSIVE TO STIMULI [None]
  - UROSEPSIS [None]
  - HYPOGLYCAEMIA [None]
  - PYREXIA [None]
  - ELECTROLYTE IMBALANCE [None]
  - CONVULSION [None]
  - ENTEROCOCCAL INFECTION [None]
  - MENTAL STATUS CHANGES [None]
  - CANDIDURIA [None]
  - THROMBOCYTOPENIA [None]
